FAERS Safety Report 20796303 (Version 3)
Quarter: 2022Q3

REPORT INFORMATION
  Report Type: Spontaneous
  Country: US (occurrence: US)
  Receive Date: 20220506
  Receipt Date: 20220707
  Transmission Date: 20221027
  Serious: Yes (Other)
  Sender: FDA-Public Use
  Company Number: US-BIOVITRUM-2022US05818

PATIENT
  Age: 66 Year
  Sex: Male

DRUGS (9)
  1. KINERET [Suspect]
     Active Substance: ANAKINRA
     Indication: Chondrocalcinosis pyrophosphate
     Dates: start: 20220409
  2. KINERET [Suspect]
     Active Substance: ANAKINRA
     Indication: Rheumatoid arthritis
  3. KINERET [Suspect]
     Active Substance: ANAKINRA
     Indication: Chondrocalcinosis pyrophosphate
  4. FISH OIL [Concomitant]
     Active Substance: FISH OIL
  5. VITAMINS [Concomitant]
     Active Substance: VITAMINS
  6. ASPIRIN [Concomitant]
     Active Substance: ASPIRIN
  7. LISINOPRIL [Concomitant]
     Active Substance: LISINOPRIL
  8. PREDNISONE [Concomitant]
     Active Substance: PREDNISONE
  9. AMLODIPINE [Concomitant]
     Active Substance: AMLODIPINE BESYLATE

REACTIONS (14)
  - Muscle rupture [Unknown]
  - Limb injury [Unknown]
  - Peripheral swelling [Unknown]
  - Pain in extremity [Unknown]
  - Pollakiuria [Unknown]
  - Generalised oedema [Unknown]
  - Fluid retention [Unknown]
  - Overconfidence [Unknown]
  - Joint swelling [Unknown]
  - Pain [Unknown]
  - Fatigue [Unknown]
  - Contusion [Unknown]
  - Discomfort [Unknown]
  - Off label use [Recovered/Resolved]

NARRATIVE: CASE EVENT DATE: 20220409
